FAERS Safety Report 6325275-3 (Version None)
Quarter: 2009Q3

REPORT INFORMATION
  Report Type: 
  Country: None (occurrence: None)
  Receive Date: 20090824
  Receipt Date: 20090624
  Transmission Date: 20100115
  Serious: No
  Sender: FDA-Public Use
  Company Number: US-ABBOTT-09P-163-0582205-00

PATIENT
  Sex: Female
  Weight: 67.192 kg

DRUGS (2)
  1. NIASPAN [Suspect]
     Indication: BLOOD CHOLESTEROL INCREASED
     Dates: start: 20081201
  2. NIASPAN [Suspect]
     Dates: start: 20090604, end: 20090611

REACTIONS (2)
  - FLUSHING [None]
  - PERIPHERAL COLDNESS [None]
